FAERS Safety Report 5284190-7 (Version None)
Quarter: 2007Q1

REPORT INFORMATION
  Report Type: 
  Country: None (occurrence: None)
  Receive Date: 20070328
  Receipt Date: 20070315
  Transmission Date: 20070707
  Serious: Yes (Other)
  Sender: FDA-Public Use
  Company Number: 07-000333

PATIENT
  Age: 66 Year
  Sex: Male

DRUGS (1)
  1. DORYX [Suspect]
     Dosage: 100 MG Q12H FOR 2 WEEKS, ORAL
     Route: 048

REACTIONS (1)
  - GENERALISED OEDEMA [None]
